FAERS Safety Report 9310651 (Version 1)
Quarter: 2013Q2

REPORT INFORMATION
  Report Type: Spontaneous
  Country: US (occurrence: US)
  Receive Date: 20130527
  Receipt Date: 20130527
  Transmission Date: 20140414
  Serious: No
  Sender: FDA-Public Use
  Company Number: US-009507513-1305USA012440

PATIENT
  Sex: Male

DRUGS (2)
  1. NOXAFIL [Suspect]
     Indication: SINUSITIS FUNGAL
     Dosage: 200 MG, QID
     Route: 048
  2. NOXAFIL [Suspect]
     Dosage: 400 MG, BID
     Route: 048

REACTIONS (1)
  - Drug screen negative [Unknown]
